FAERS Safety Report 4283843-7 (Version None)
Quarter: 2004Q1

REPORT INFORMATION
  Report Type: 
  Country: None (occurrence: None)
  Receive Date: 20040130
  Receipt Date: 20040121
  Transmission Date: 20041129
  Serious: Yes (Death, Hospitalization)
  Sender: FDA-Public Use
  Company Number: HQWYE960630DEC03

PATIENT
  Age: 68 Year
  Sex: Male

DRUGS (5)
  1. CORDARONE [Suspect]
     Indication: ARRHYTHMIA
     Dosage: UNSPECIFIED; ORAL
     Route: 048
     Dates: start: 20021101, end: 20030501
  2. CORDARONE [Suspect]
     Dosage: 400 MG 1X PER 1 DAY; ORAL
     Route: 048
     Dates: start: 20031021, end: 20031025
  3. CORDARONE [Suspect]
     Dosage: 200 MG 1X PER 1 DAY; ORAL
     Route: 048
     Dates: start: 20031026, end: 20031110
  4. CERTICAN (EVEROLIMUS, ) [Suspect]
     Indication: PROPHYLAXIS AGAINST TRANSPLANT REJECTION
     Dosage: UNSPECIFIED; ORAL
     Route: 048
     Dates: start: 19990101, end: 20030101
  5. CERTICAN (EVEROLIMUS, ) [Suspect]
     Dosage: UNSPECIFIED; ORAL
     Route: 048
     Dates: start: 20031126

REACTIONS (4)
  - HERPES SIMPLEX [None]
  - INTERSTITIAL LUNG DISEASE [None]
  - PNEUMONIA [None]
  - RESPIRATORY DISTRESS [None]
